FAERS Safety Report 5455230-7 (Version None)
Quarter: 2007Q3

REPORT INFORMATION
  Report Type: 
  Country: None (occurrence: None)
  Receive Date: 20070918
  Receipt Date: 20070911
  Transmission Date: 20080115
  Serious: Yes (Hospitalization)
  Sender: FDA-Public Use
  Company Number: PHBS2007TR14920

PATIENT
  Age: 22 Year
  Sex: Female

DRUGS (2)
  1. HYDRALAZINE HCL [Suspect]
     Indication: HYPERTENSION
     Route: 042
  2. MAGNESIUM SULFATE [Concomitant]
     Indication: PRE-ECLAMPSIA
     Dosage: 2 G/H
     Route: 042

REACTIONS (8)
  - CAESAREAN SECTION [None]
  - DRUG EXPOSURE DURING PREGNANCY [None]
  - FOETAL GROWTH RETARDATION [None]
  - OLIGOHYDRAMNIOS [None]
  - PREMATURE BABY [None]
  - RETROPLACENTAL HAEMATOMA [None]
  - UTERINE HYPERTONUS [None]
  - UTERINE TENDERNESS [None]
